FAERS Safety Report 13095573 (Version 1)
Quarter: 2017Q1

REPORT INFORMATION
  Report Type: Spontaneous
  Country: GB (occurrence: GB)
  Receive Date: 20170108
  Receipt Date: 20170108
  Transmission Date: 20170428
  Serious: Yes (Other)
  Sender: FDA-Public Use
  Company Number: GB-BAXTER-2016BAX065931

PATIENT
  Age: 40 Year
  Sex: Female

DRUGS (6)
  1. FENTANYL. [Suspect]
     Active Substance: FENTANYL
     Indication: ACCELERATED HYPERTENSION
     Route: 065
     Dates: start: 2016
  2. AERRANE 100% LIQUID INHALATION VAPOUR [Suspect]
     Active Substance: ISOFLURANE
     Indication: MAINTENANCE OF ANAESTHESIA
     Route: 065
  3. DESFLURANE 100%V/V INHALATION VAPOUR, LIQUID [Suspect]
     Active Substance: DESFLURANE
     Indication: MAINTENANCE OF ANAESTHESIA
     Route: 055
     Dates: start: 2016, end: 2016
  4. DESFLURANE 100%V/V INHALATION VAPOUR, LIQUID [Suspect]
     Active Substance: DESFLURANE
     Dosage: DOSE RE-INTRODUCED
     Route: 055
     Dates: start: 2016
  5. SEVOFLURANE BAXTER, 100% INHALATION VAPOUR, LIQUID [Suspect]
     Active Substance: SEVOFLURANE
     Indication: MAINTENANCE OF ANAESTHESIA
     Route: 065
     Dates: start: 2016
  6. LABETALOL [Suspect]
     Active Substance: LABETALOL\LABETALOL HYDROCHLORIDE
     Indication: ACCELERATED HYPERTENSION
     Route: 065
     Dates: start: 2016

REACTIONS (4)
  - ECG signs of myocardial ischaemia [Unknown]
  - Atrial tachycardia [Recovered/Resolved]
  - Intraocular pressure increased [Recovered/Resolved]
  - Accelerated hypertension [Recovered/Resolved]

NARRATIVE: CASE EVENT DATE: 2016
